FAERS Safety Report 5294754-2 (Version None)
Quarter: 2007Q2

REPORT INFORMATION
  Report Type: 
  Country: None (occurrence: None)
  Receive Date: 20070412
  Receipt Date: 20070403
  Transmission Date: 20071010
  Serious: Yes (Other)
  Sender: FDA-Public Use
  Company Number: DE-ABBOTT-07P-062-0364084-00

PATIENT
  Age: 58 Year
  Sex: Female

DRUGS (2)
  1. ZEMPLAR [Suspect]
     Indication: DRUG USE FOR UNKNOWN INDICATION
     Route: 042
     Dates: end: 20060905
  2. ZEMPLAR [Suspect]
     Route: 042
     Dates: start: 20061025

REACTIONS (1)
  - BLOOD PARATHYROID HORMONE INCREASED [None]
